FAERS Safety Report 24983267 (Version 2)
Quarter: 2025Q2

REPORT INFORMATION
  Report Type: Spontaneous
  Country: US (occurrence: US)
  Receive Date: 20250219
  Receipt Date: 20250519
  Transmission Date: 20250717
  Serious: Yes (Other)
  Sender: BRISTOL-MYERS SQUIBB COMPANY
  Company Number: US-BRISTOL-MYERS SQUIBB COMPANY-2025-021662

PATIENT
  Age: 76 Year
  Sex: Female
  Weight: 68.49 kg

DRUGS (2)
  1. ORENCIA [Suspect]
     Active Substance: ABATACEPT
     Indication: Rheumatoid arthritis
     Route: 058
     Dates: start: 20250204
  2. ATORVASTATIN [Concomitant]
     Active Substance: ATORVASTATIN
     Indication: Blood cholesterol

REACTIONS (3)
  - Pneumonia [Unknown]
  - Product use issue [Unknown]
  - Device operational issue [Unknown]

NARRATIVE: CASE EVENT DATE: 20250208
